FAERS Safety Report 8333579-8 (Version None)
Quarter: 2012Q2

REPORT INFORMATION
  Report Type: 
  Country: None (occurrence: None)
  Receive Date: 20120503
  Receipt Date: 20120423
  Transmission Date: 20120825
  Serious: Yes (Other)
  Sender: FDA-Public Use
  Company Number: PHHY2012BR035091

PATIENT
  Age: 84 Year
  Sex: Female

DRUGS (2)
  1. EXELON [Suspect]
     Indication: DEMENTIA ALZHEIMER'S TYPE
     Dosage: 4.6MG/5CM2 1 PATCH DAILY
     Route: 062
     Dates: start: 20120201, end: 20120301
  2. EXELON [Suspect]
     Dosage: 9.5MG/10CM2  1 PATCH DAILY
     Route: 062
     Dates: end: 20120408

REACTIONS (4)
  - MEMORY IMPAIRMENT [None]
  - URINARY TRACT INFECTION [None]
  - LOSS OF CONSCIOUSNESS [None]
  - CONFUSIONAL STATE [None]
